FAERS Safety Report 8916582 (Version 1)
Quarter: 2012Q4

REPORT INFORMATION
  Report Type: 
  Country: US (occurrence: US)
  Receive Date: 20121120
  Receipt Date: 20121120
  Transmission Date: 20130627
  Serious: No
  Sender: FDA-Public Use
  Company Number: US-009507513-1211USA005334

PATIENT
  Sex: Female

DRUGS (5)
  1. DULERA [Suspect]
     Dosage: 2 DF, bid
     Route: 055
  2. PATANOL [Concomitant]
  3. LISINOPRIL [Concomitant]
  4. HYDROCHLOROTHIAZIDE [Concomitant]
  5. INHALED CORTICOSTEROID (UNSPECIFIED) [Concomitant]

REACTIONS (3)
  - Malaise [Not Recovered/Not Resolved]
  - Drug dose omission [Unknown]
  - Product quality issue [Unknown]
